FAERS Safety Report 25169649 (Version 1)
Quarter: 2025Q2

REPORT INFORMATION
  Report Type: Spontaneous
  Country: US (occurrence: US)
  Receive Date: 20250407
  Receipt Date: 20250407
  Transmission Date: 20250717
  Serious: Yes (Other)
  Sender: VIIV
  Company Number: US-ViiV Healthcare-106915

PATIENT

DRUGS (3)
  1. JULUCA [Interacting]
     Active Substance: DOLUTEGRAVIR SODIUM\RILPIVIRINE HYDROCHLORIDE
     Indication: HIV infection
     Dosage: 1 DF, QD, STARTED COUPLE OF YEARS AGO
     Route: 048
     Dates: start: 202101
  2. KETOCONAZOLE [Interacting]
     Active Substance: KETOCONAZOLE
     Indication: Product used for unknown indication
  3. PAXLOVID [Suspect]
     Active Substance: NIRMATRELVIR\RITONAVIR
     Indication: Product used for unknown indication

REACTIONS (8)
  - May-Thurner syndrome [Unknown]
  - Suicidal ideation [Unknown]
  - Stress [Unknown]
  - Viral load increased [Unknown]
  - COVID-19 [Unknown]
  - Drug interaction [Unknown]
  - Exploratory operation [Unknown]
  - Product dose omission issue [Unknown]

NARRATIVE: CASE EVENT DATE: 20230801
